FAERS Safety Report 5532530-3 (Version None)
Quarter: 2007Q4

REPORT INFORMATION
  Report Type: 
  Country: None (occurrence: None)
  Receive Date: 20071203
  Receipt Date: 20071124
  Transmission Date: 20080405
  Serious: Yes (Other)
  Sender: FDA-Public Use
  Company Number: RO-PFIZER INC-2007099483

PATIENT
  Age: 30 Year
  Sex: Male

DRUGS (1)
  1. GEODON [Suspect]
     Indication: MENTAL DISORDER

REACTIONS (23)
  - ABDOMINAL PAIN UPPER [None]
  - ACUTE STRESS DISORDER [None]
  - ANXIETY [None]
  - ARTHRALGIA [None]
  - BLOOD GLUCOSE INCREASED [None]
  - CHEST PAIN [None]
  - DEPRESSED MOOD [None]
  - DISTURBANCE IN ATTENTION [None]
  - DIZZINESS [None]
  - HEADACHE [None]
  - IMMUNE SYSTEM DISORDER [None]
  - INSOMNIA [None]
  - LOSS OF CONSCIOUSNESS [None]
  - MALAISE [None]
  - MEMORY IMPAIRMENT [None]
  - MUSCLE DISORDER [None]
  - MUSCLE SPASMS [None]
  - NASOPHARYNGITIS [None]
  - NAUSEA [None]
  - NERVOUS SYSTEM DISORDER [None]
  - NERVOUSNESS [None]
  - PAIN [None]
  - TEMPERATURE INTOLERANCE [None]
